FAERS Safety Report 12728828 (Version 1)
Quarter: 2016Q3

REPORT INFORMATION
  Report Type: Spontaneous
  Country: US (occurrence: US)
  Receive Date: 20160909
  Receipt Date: 20160909
  Transmission Date: 20161109
  Serious: Yes (Disabling)
  Sender: FDA-Public Use
  Company Number: US-ELI_LILLY_AND_COMPANY-US201609002099

PATIENT
  Sex: Female

DRUGS (3)
  1. TRULICITY [Suspect]
     Active Substance: DULAGLUTIDE
     Indication: TYPE 2 DIABETES MELLITUS
     Dosage: 0.75 MG, WEEKLY (1/W)
     Route: 065
     Dates: start: 201608
  2. TRULICITY [Suspect]
     Active Substance: DULAGLUTIDE
     Dosage: 1.5 MG, WEEKLY (1/W)
     Route: 065
  3. TRULICITY [Suspect]
     Active Substance: DULAGLUTIDE
     Dosage: 1.5 MG, WEEKLY (1/W)
     Route: 065

REACTIONS (12)
  - Frustration tolerance decreased [Unknown]
  - Abdominal pain upper [Unknown]
  - Back pain [Unknown]
  - Nephrolithiasis [Unknown]
  - Depressed mood [Unknown]
  - Flatulence [Unknown]
  - Fatigue [Unknown]
  - Insomnia [Unknown]
  - Urinary tract infection [Unknown]
  - Abdominal distension [Unknown]
  - Vomiting [Unknown]
  - Feeding disorder [Unknown]
